FAERS Safety Report 7260395-0 (Version None)
Quarter: 2011Q1

REPORT INFORMATION
  Report Type: 
  Country: None (occurrence: None)
  Receive Date: 20110130
  Receipt Date: 20101020
  Transmission Date: 20110831
  Serious: No
  Sender: FDA-Public Use
  Company Number: US-ABBOTT-10P-163-0679822-00

PATIENT
  Sex: Female
  Weight: 122.58 kg

DRUGS (5)
  1. HUMIRA [Suspect]
     Indication: PSORIASIS
     Route: 058
     Dates: start: 20100817
  2. LISINOPRIL [Concomitant]
     Indication: HYPERTENSION
  3. CLARITIN [Concomitant]
     Indication: HYPERSENSITIVITY
  4. ASPIRIN [Concomitant]
     Indication: PRODUCT USED FOR UNKNOWN INDICATION
  5. ZOCOR [Concomitant]
     Indication: BLOOD CHOLESTEROL INCREASED

REACTIONS (1)
  - INJECTION SITE HAEMATOMA [None]
